FAERS Safety Report 11502825 (Version 10)
Quarter: 2016Q4

REPORT INFORMATION
  Report Type: Spontaneous
  Country: US (occurrence: US)
  Receive Date: 20150914
  Receipt Date: 20161221
  Transmission Date: 20170206
  Serious: Yes (Hospitalization, Other)
  Sender: FDA-Public Use
  Company Number: US-ASTELLAS-2015US029272

PATIENT
  Age: 79 Year
  Sex: Male

DRUGS (3)
  1. XTANDI [Suspect]
     Active Substance: ENZALUTAMIDE
     Indication: MALIGNANT URINARY TRACT NEOPLASM
  2. XTANDI [Suspect]
     Active Substance: ENZALUTAMIDE
     Indication: PROSTATE CANCER
     Route: 048
     Dates: start: 201507
  3. XTANDI [Suspect]
     Active Substance: ENZALUTAMIDE
     Indication: METASTASES TO BONE

REACTIONS (23)
  - Renal disorder [Unknown]
  - Blood urine present [Not Recovered/Not Resolved]
  - Diarrhoea [Unknown]
  - Urinary tract disorder [Unknown]
  - Groin pain [Unknown]
  - Vomiting [Unknown]
  - Renal pain [Recovering/Resolving]
  - Hot flush [Recovering/Resolving]
  - Urinary tract infection [Unknown]
  - Constipation [Recovering/Resolving]
  - Nausea [Unknown]
  - Anxiety [Unknown]
  - Pyrexia [Recovering/Resolving]
  - Dizziness [Unknown]
  - Device related infection [Unknown]
  - Drug dose omission [Unknown]
  - Bladder catheterisation [Unknown]
  - Arrhythmia [Unknown]
  - Catheter site haematoma [Not Recovered/Not Resolved]
  - Urinary tract infection [Recovering/Resolving]
  - Diarrhoea [Recovering/Resolving]
  - Thrombosis [Unknown]
  - Treatment failure [Not Recovered/Not Resolved]

NARRATIVE: CASE EVENT DATE: 201507
